FAERS Safety Report 6596634-9 (Version None)
Quarter: 2010Q1

REPORT INFORMATION
  Report Type: 
  Country: None (occurrence: None)
  Receive Date: 20100216
  Receipt Date: 20100202
  Transmission Date: 20100710
  Serious: Yes (Hospitalization, Disabling)
  Sender: FDA-Public Use
  Company Number: A-NJ2007-17698

PATIENT
  Age: 59 Year
  Sex: Female

DRUGS (1)
  1. TRACLEER(BOSENTAN 62.5 MG) TABLET [Suspect]
     Indication: PULMONARY ARTERIAL HYPERTENSION
     Dosage: 62.5MG, BID, ORAL
     Route: 048
     Dates: start: 20070830

REACTIONS (12)
  - ABDOMINAL PAIN [None]
  - CHOLECYSTITIS CHRONIC [None]
  - CHRONIC OBSTRUCTIVE PULMONARY DISEASE [None]
  - CONDITION AGGRAVATED [None]
  - HEADACHE [None]
  - HEPATIC NEOPLASM MALIGNANT [None]
  - INAPPROPRIATE SCHEDULE OF DRUG ADMINISTRATION [None]
  - LIVER FUNCTION TEST ABNORMAL [None]
  - OEDEMA PERIPHERAL [None]
  - OFF LABEL USE [None]
  - PALPITATIONS [None]
  - PNEUMONIA STAPHYLOCOCCAL [None]
